FAERS Safety Report 20147166 (Version 6)
Quarter: 2022Q3

REPORT INFORMATION
  Report Type: Spontaneous
  Country: US (occurrence: US)
  Receive Date: 20211203
  Receipt Date: 20220810
  Transmission Date: 20221026
  Serious: No
  Sender: FDA-Public Use
  Company Number: US-SA-SAC20211126001353

PATIENT
  Age: 60 Year
  Sex: Female

DRUGS (1)
  1. AUBAGIO [Suspect]
     Active Substance: TERIFLUNOMIDE
     Indication: Multiple sclerosis
     Dosage: 14 MG, QD
     Route: 048
     Dates: start: 20210908

REACTIONS (15)
  - Dysstasia [Unknown]
  - Skin ulcer [Unknown]
  - Eyelid disorder [Unknown]
  - Fall [Unknown]
  - Malaise [Unknown]
  - Tremor [Unknown]
  - Pain [Unknown]
  - Muscular weakness [Unknown]
  - Vision blurred [Unknown]
  - Gait disturbance [Unknown]
  - Visual impairment [Unknown]
  - Secretion discharge [Unknown]
  - Dyspnoea [Unknown]
  - Arthralgia [Unknown]
  - Hypoaesthesia [Unknown]
